FAERS Safety Report 7251435-3 (Version None)
Quarter: 2011Q1

REPORT INFORMATION
  Report Type: 
  Country: None (occurrence: None)
  Receive Date: 20110128
  Receipt Date: 20110119
  Transmission Date: 20110831
  Serious: Yes (Other)
  Sender: FDA-Public Use
  Company Number: BR-PFIZER INC-2010050914

PATIENT
  Age: 66 Year
  Sex: Female
  Weight: 51 kg

DRUGS (5)
  1. AMIODARONE [Concomitant]
     Indication: PALPITATIONS
     Dosage: UNK
  2. MINERAL OIL EMULSION [Concomitant]
     Indication: CONSTIPATION
     Route: 048
  3. GLYCEROL [Suspect]
     Indication: CONSTIPATION
     Dosage: UNK
     Route: 054
  4. VERAPAMIL [Concomitant]
     Indication: HYPERTENSION
     Dosage: UNK
  5. LYRICA [Suspect]
     Indication: PAIN
     Dosage: 75 MG, 2 CAPSULES DAILY
     Route: 048
     Dates: start: 20100401, end: 20110117

REACTIONS (11)
  - URINARY TRACT INFECTION [None]
  - GASTROINTESTINAL PAIN [None]
  - DECREASED APPETITE [None]
  - SELF ESTEEM DECREASED [None]
  - WEIGHT DECREASED [None]
  - HELICOBACTER INFECTION [None]
  - CONSTIPATION [None]
  - PAIN [None]
  - TREMOR [None]
  - GASTRITIS EROSIVE [None]
  - DRUG INEFFECTIVE [None]
